FAERS Safety Report 9381421 (Version 1)
Quarter: 2013Q3

REPORT INFORMATION
  Report Type: Spontaneous
  Country: BR (occurrence: BR)
  Receive Date: 20130703
  Receipt Date: 20130703
  Transmission Date: 20140515
  Serious: Yes (Other)
  Sender: FDA-Public Use
  Company Number: PHHY2013BR041804

PATIENT
  Sex: Female
  Weight: 67 kg

DRUGS (4)
  1. RITALINA [Suspect]
     Indication: ATTENTION DEFICIT/HYPERACTIVITY DISORDER
     Dosage: 3 DF, DAILY
     Route: 048
  2. RITALIN LA [Suspect]
     Indication: ATTENTION DEFICIT/HYPERACTIVITY DISORDER
     Dosage: 1 DF, DAILY
     Route: 048
  3. SERTRALINE [Suspect]
     Dosage: UNK UKN, UNK
     Route: 065
  4. RECONTER [Concomitant]
     Indication: SLEEP DISORDER
     Dosage: 1 DF, QD
     Route: 048

REACTIONS (11)
  - Withdrawal syndrome [Recovered/Resolved]
  - Negativism [Recovered/Resolved]
  - Judgement impaired [Recovered/Resolved]
  - Aggression [Recovered/Resolved]
  - Disorientation [Recovered/Resolved]
  - Depressed mood [Recovered/Resolved]
  - Attention deficit/hyperactivity disorder [Recovered/Resolved]
  - Performance status decreased [Recovered/Resolved]
  - Impulsive behaviour [Recovered/Resolved]
  - Disturbance in attention [Recovered/Resolved]
  - Insomnia [Recovered/Resolved]
